FAERS Safety Report 17466983 (Version 2)
Quarter: 2020Q1

REPORT INFORMATION
  Report Type: Spontaneous
  Country: FR (occurrence: FR)
  Receive Date: 20200227
  Receipt Date: 20200326
  Transmission Date: 20200409
  Serious: Yes (Hospitalization)
  Sender: FDA-Public Use
  Company Number: FR-AMERICAN REGENT INC-2020000507

PATIENT
  Age: 92 Year
  Sex: Female
  Weight: 65.9 kg

DRUGS (1)
  1. VENOFER [Suspect]
     Active Substance: IRON SUCROSE
     Indication: ANAEMIA
     Dosage: 2 INFUSIONS AT A DOSE OF 300 MG WITH 48 HOURS OF INTERVAL (600 MG)
     Dates: start: 20200113, end: 20200115

REACTIONS (3)
  - Hepatocellular injury [Recovered/Resolved]
  - Hepatic encephalopathy [Recovered/Resolved]
  - Hepatic failure [Recovered/Resolved]

NARRATIVE: CASE EVENT DATE: 20200117
